FAERS Safety Report 21400304 (Version 1)
Quarter: 2022Q3

REPORT INFORMATION
  Report Type: Spontaneous
  Country: US (occurrence: None)
  Receive Date: 20220930
  Receipt Date: 20220930
  Transmission Date: 20221027
  Serious: Yes (Hospitalization)
  Sender: FDA-Public Use
  Company Number: None

PATIENT
  Age: 54 Year
  Sex: Male
  Weight: 81.2 kg

DRUGS (1)
  1. CARBOPLATIN [Suspect]
     Active Substance: CARBOPLATIN
     Dates: end: 20220921

REACTIONS (10)
  - Fatigue [None]
  - Nausea [None]
  - Pyrexia [None]
  - Decreased appetite [None]
  - Night sweats [None]
  - Enterovirus test positive [None]
  - Blood bilirubin increased [None]
  - Proteinuria [None]
  - Blood creatinine increased [None]
  - Urinary tract infection [None]

NARRATIVE: CASE EVENT DATE: 20220927
